FAERS Safety Report 6279638-5 (Version None)
Quarter: 2009Q3

REPORT INFORMATION
  Report Type: 
  Country: None (occurrence: None)
  Receive Date: 20090721
  Receipt Date: 20090715
  Transmission Date: 20100115
  Serious: Yes (Hospitalization)
  Sender: FDA-Public Use
  Company Number: GXKR2009DE08057

PATIENT
  Age: 72 Year
  Sex: Female
  Weight: 80 kg

DRUGS (18)
  1. METRONIDAZOLE [Suspect]
     Indication: DIARRHOEA
     Dosage: 500 MG, BID, ORAL
     Route: 048
     Dates: start: 20090217, end: 20090226
  2. PANTOPRAZOLE SODIUM [Suspect]
     Indication: PROPHYLAXIS AGAINST GASTROINTESTINAL ULCER
     Dosage: 40 MG, QD, ORAL
     Route: 048
     Dates: start: 20090101
  3. TAZOBACTAM [Suspect]
     Indication: URINARY TRACT INFECTION
     Dosage: 1 DF, TID, IV DRIP
     Route: 041
     Dates: start: 20090315, end: 20090324
  4. LEVOFLOXACIN [Suspect]
     Indication: URINARY TRACT INFECTION
     Dosage: 500 MG, QD, ORAL
     Route: 048
     Dates: start: 20090203, end: 20090209
  5. SULTAMICILLIN (SULTAMICILLIN) [Suspect]
     Indication: URINARY TRACT INFECTION
     Dosage: 3 G, TID, INTRAVENOUS
     Route: 042
     Dates: start: 20090313, end: 20090314
  6. XIPAMIDE (XIPAMIDE) [Concomitant]
  7. TORSEMIDE [Concomitant]
  8. RAMIPRIL [Concomitant]
  9. METOPROLOL SUCCINATE [Concomitant]
  10. LEVEMIR [Concomitant]
  11. CLOPIDOGREL [Concomitant]
  12. GABAPENTIN [Concomitant]
  13. FUROSEMIDE [Concomitant]
  14. FERRO ^SANOL^ (FERROGLYCINE SULFATE COMPLEX) [Concomitant]
  15. DIGITOXIN INJ [Concomitant]
  16. ASS ^CT-ARZNEIMITTEL^ (ACETYLSALICYLC ACID) [Concomitant]
  17. ALLOPURINOL [Concomitant]
  18. ACTRAPID HUMAN (INSULIN HUMAN) [Concomitant]

REACTIONS (2)
  - CLOSTRIDIUM DIFFICILE COLITIS [None]
  - DRUG INTERACTION [None]
